FAERS Safety Report 7950318-0 (Version None)
Quarter: 2011Q4

REPORT INFORMATION
  Report Type: 
  Country: None (occurrence: None)
  Receive Date: 20111130
  Receipt Date: 20111118
  Transmission Date: 20120403
  Serious: Yes (Hospitalization)
  Sender: FDA-Public Use
  Company Number: NO-ELI_LILLY_AND_COMPANY-NO201111005909

PATIENT
  Sex: Male

DRUGS (2)
  1. CLONAZEPAM [Concomitant]
     Indication: ANXIETY
  2. OLANZAPINE [Suspect]
     Indication: SCHIZOPHRENIA
     Dosage: 210 MG, UNKNOWN
     Dates: start: 20110703

REACTIONS (7)
  - DIZZINESS [None]
  - SOMNOLENCE [None]
  - ATAXIA [None]
  - AGITATION [None]
  - CONFUSIONAL STATE [None]
  - IRRITABILITY [None]
  - NAUSEA [None]
